FAERS Safety Report 25176709 (Version 1)
Quarter: 2025Q2

REPORT INFORMATION
  Report Type: Spontaneous
  Country: US (occurrence: US)
  Receive Date: 20250409
  Receipt Date: 20250409
  Transmission Date: 20250716
  Serious: No
  Sender: BRISTOL MYERS SQUIBB
  Company Number: US-BRISTOL-MYERS SQUIBB COMPANY-2025-049354

PATIENT

DRUGS (2)
  1. COBENFY [Suspect]
     Active Substance: TROSPIUM CHLORIDE\XANOMELINE
     Indication: Product used for unknown indication
     Dosage: DOSE: 50/20 MG?PRODUCT START DATE: STARTED APPROXIMATELY 5 DAYS AGO
  2. FLUOXETINE [Concomitant]
     Active Substance: FLUOXETINE HYDROCHLORIDE
     Indication: Product used for unknown indication

REACTIONS (3)
  - Diarrhoea [Unknown]
  - Pollakiuria [Unknown]
  - Accident at work [Unknown]
